FAERS Safety Report 4811407-2 (Version None)
Quarter: 2005Q4

REPORT INFORMATION
  Report Type: 
  Country: None (occurrence: None)
  Receive Date: 20051026
  Receipt Date: 20051026
  Transmission Date: 20060501
  Serious: Yes (Hospitalization)
  Sender: FDA-Public Use
  Company Number: None

PATIENT
  Sex: Male
  Weight: 102 kg

DRUGS (4)
  1. KETEK [Suspect]
     Indication: HEPATITIS
     Dates: start: 20050902
  2. KETEK [Suspect]
     Indication: HEPATITIS
     Dates: start: 20051003
  3. NASONEX [Concomitant]
  4. BROMFENEX [Concomitant]

REACTIONS (4)
  - ABDOMINAL PAIN UPPER [None]
  - NAUSEA [None]
  - PYREXIA [None]
  - VOMITING [None]
